FAERS Safety Report 7437877-1 (Version None)
Quarter: 2011Q2

REPORT INFORMATION
  Report Type: 
  Country: None (occurrence: None)
  Receive Date: 20110426
  Receipt Date: 20110416
  Transmission Date: 20111010
  Serious: Yes (Other)
  Sender: FDA-Public Use
  Company Number: B0669366A

PATIENT
  Sex: Male
  Weight: 33 kg

DRUGS (4)
  1. SINGULAIR [Concomitant]
     Route: 048
  2. INTAL [Concomitant]
     Route: 025
  3. FLUTIDE DISKUS [Suspect]
     Indication: ASTHMA
     Dosage: 100MCG PER DAY
     Route: 055
     Dates: start: 20080101, end: 20100611
  4. NIPOLAZIN [Concomitant]
     Route: 048

REACTIONS (2)
  - INTRAOCULAR PRESSURE INCREASED [None]
  - EYELID OEDEMA [None]
